FAERS Safety Report 17827694 (Version 3)
Quarter: 2022Q4

REPORT INFORMATION
  Report Type: Report from Study
  Country: DE (occurrence: None)
  Receive Date: 20200527
  Receipt Date: 20221013
  Transmission Date: 20230113
  Serious: Yes (Death, Life-Threatening, Hospitalization)
  Sender: FDA-Public Use
  Company Number: DE-MERCK HEALTHCARE KGAA-9165327

PATIENT
  Age: 13 Year
  Sex: Male
  Weight: 43 kg

DRUGS (2)
  1. SAIZEN [Suspect]
     Active Substance: SOMATROPIN
     Indication: Growth hormone deficiency
     Route: 058
     Dates: start: 20191108
  2. SAIZEN [Suspect]
     Active Substance: SOMATROPIN
     Route: 058
     Dates: end: 20200512

REACTIONS (2)
  - Central nervous system neoplasm [Fatal]
  - Recurrent cancer [Fatal]

NARRATIVE: CASE EVENT DATE: 20200520
